FAERS Safety Report 6058205-2 (Version None)
Quarter: 2009Q1

REPORT INFORMATION
  Report Type: 
  Country: None (occurrence: None)
  Receive Date: 20090130
  Receipt Date: 20090119
  Transmission Date: 20090719
  Serious: Yes (Other)
  Sender: FDA-Public Use
  Company Number: US-JNJFOC-20090104745

PATIENT
  Age: 23 Year

DRUGS (1)
  1. TYLENOL COUGH + SORE THROAT NIGHTTIME COOL BURST [Suspect]
     Indication: DRUG USE FOR UNKNOWN INDICATION
     Dosage: 8 OZ (ACETAMINOPHEN 8000 MG/DEXTROMETHORPHAN HBR 240 MG/DOXYLAMINE SUCCINATE 100 MG)
     Route: 048

REACTIONS (1)
  - INTENTIONAL OVERDOSE [None]
